FAERS Safety Report 8949898 (Version 1)
Quarter: 2012Q4

REPORT INFORMATION
  Report Type: 
  Country: US (occurrence: US)
  Receive Date: 20121206
  Receipt Date: 20121206
  Transmission Date: 20130627
  Serious: No
  Sender: FDA-Public Use
  Company Number: US-PFIZER INC-2012302207

PATIENT
  Age: 84 Year
  Sex: Male

DRUGS (2)
  1. LATANOPROST [Suspect]
     Dosage: 1 Gtt in each eye, 1x/day
     Route: 047
  2. LATANOPROST [Suspect]

REACTIONS (3)
  - Product quality issue [Unknown]
  - Overdose [Unknown]
  - Eye irritation [Unknown]
